FAERS Safety Report 15259361 (Version 1)
Quarter: 2018Q3

REPORT INFORMATION
  Report Type: Spontaneous
  Country: US (occurrence: US)
  Receive Date: 20180719
  Receipt Date: 20180719
  Transmission Date: 20181010
  Serious: Yes (Hospitalization)
  Sender: FDA-Public Use
  Company Number: None

PATIENT
  Sex: Female

DRUGS (1)
  1. RISEDRONATE [Suspect]
     Active Substance: RISEDRONATE SODIUM
     Indication: BONE DENSITY DECREASED

REACTIONS (5)
  - Chest pain [None]
  - Drug hypersensitivity [None]
  - Pain [None]
  - Muscle spasms [None]
  - Mobility decreased [None]

NARRATIVE: CASE EVENT DATE: 20180602
